FAERS Safety Report 13606221 (Version 2)
Quarter: 2017Q4

REPORT INFORMATION
  Report Type: Spontaneous
  Country: US (occurrence: US)
  Receive Date: 20170602
  Receipt Date: 20171116
  Transmission Date: 20180320
  Serious: Yes (Other)
  Sender: FDA-Public Use
  Company Number: US-SUN PHARMACEUTICAL INDUSTRIES LTD-2017US-142118

PATIENT
  Age: 24 Month
  Sex: Male

DRUGS (1)
  1. DEXAMETHASONE. [Suspect]
     Active Substance: DEXAMETHASONE
     Indication: ACUTE LYMPHOCYTIC LEUKAEMIA
     Route: 065

REACTIONS (8)
  - Hypophagia [Recovering/Resolving]
  - Aggression [Recovering/Resolving]
  - Hypervigilance [Recovering/Resolving]
  - Crying [Recovering/Resolving]
  - Insomnia [Recovering/Resolving]
  - Affective disorder [Recovered/Resolved]
  - Intentional self-injury [Recovering/Resolving]
  - Abnormal behaviour [Recovered/Resolved]
